FAERS Safety Report 7345127-X (Version None)
Quarter: 2011Q1

REPORT INFORMATION
  Report Type: 
  Country: None (occurrence: None)
  Receive Date: 20110310
  Receipt Date: 20110228
  Transmission Date: 20110831
  Serious: No
  Sender: FDA-Public Use
  Company Number: FR-ELI_LILLY_AND_COMPANY-FR201103000838

PATIENT
  Age: 45 Year
  Sex: Female

DRUGS (2)
  1. RISPERDAL [Concomitant]
     Dosage: 1 MG, DAILY (1/D)
  2. CYMBALTA [Suspect]
     Dosage: UNK, UNK

REACTIONS (1)
  - ALANINE AMINOTRANSFERASE INCREASED [None]
